FAERS Safety Report 18959325 (Version 2)
Quarter: 2021Q1

REPORT INFORMATION
  Report Type: Spontaneous
  Country: RU (occurrence: RU)
  Receive Date: 20210302
  Receipt Date: 20210309
  Transmission Date: 20210420
  Serious: Yes (Other)
  Sender: FDA-Public Use
  Company Number: NVSC2021RU045329

PATIENT
  Age: 5 Year
  Sex: Male
  Weight: 22 kg

DRUGS (2)
  1. SANDIMMUN [Suspect]
     Active Substance: CYCLOSPORINE
     Dosage: 0.5?1.0 MG/KG, QD
     Route: 065
  2. SANDIMMUN [Suspect]
     Active Substance: CYCLOSPORINE
     Indication: LUPUS NEPHRITIS
     Dosage: 150?200 MG/M2
     Route: 065

REACTIONS (4)
  - Product use in unapproved indication [Unknown]
  - Gingival hypertrophy [Unknown]
  - Renal impairment [Unknown]
  - Hypertrichosis [Unknown]
